FAERS Safety Report 24654301 (Version 1)
Quarter: 2024Q4

REPORT INFORMATION
  Report Type: Spontaneous
  Country: US (occurrence: None)
  Receive Date: 20241122
  Receipt Date: 20241122
  Transmission Date: 20250115
  Serious: No
  Sender: Public
  Company Number: None

PATIENT
  Age: 47 Year
  Sex: Female

DRUGS (1)
  1. LEVOTHYROXINE [Suspect]
     Active Substance: LEVOTHYROXINE
     Dosage: 100 UG MICROGRAM(S) DAILY ORAL
     Route: 048
     Dates: start: 20241117, end: 20241122

REACTIONS (1)
  - Urticaria [None]

NARRATIVE: CASE EVENT DATE: 20241122
